FAERS Safety Report 4476089-0 (Version None)
Quarter: 2004Q4

REPORT INFORMATION
  Report Type: 
  Country: None (occurrence: None)
  Receive Date: 20041012
  Receipt Date: 20040930
  Transmission Date: 20050328
  Serious: Yes (Life-Threatening, Hospitalization)
  Sender: FDA-Public Use
  Company Number: 209392

PATIENT
  Age: 71 Year
  Sex: Female

DRUGS (1)
  1. RITUXAN [Suspect]
     Indication: NON-HODGKIN'S LYMPHOMA
     Dosage: 535 MG, INTRAVENOUS
     Route: 042
     Dates: start: 20020901

REACTIONS (2)
  - ACUTE MYOCARDIAL INFARCTION [None]
  - ARRHYTHMIA [None]
